FAERS Safety Report 7792228-8 (Version None)
Quarter: 2011Q3

REPORT INFORMATION
  Report Type: 
  Country: None (occurrence: None)
  Receive Date: 20110929
  Receipt Date: 20110923
  Transmission Date: 20111222
  Serious: Yes (Hospitalization)
  Sender: FDA-Public Use
  Company Number: 123935

PATIENT
  Age: 55 Year
  Sex: Male

DRUGS (2)
  1. CERUBIDINE [Suspect]
     Indication: ACUTE LEUKAEMIA
     Dosage: IV
     Route: 042
     Dates: start: 20090421, end: 20090422
  2. CERUBIDINE [Suspect]
     Indication: ACUTE LEUKAEMIA
     Dosage: IV
     Route: 042
     Dates: start: 20090406, end: 20090408

REACTIONS (3)
  - CHOLECYSTITIS ACUTE [None]
  - NEUTROPENIA [None]
  - THROMBOCYTOPENIA [None]
